FAERS Safety Report 18902704 (Version 3)
Quarter: 2023Q1

REPORT INFORMATION
  Report Type: Spontaneous
  Country: US (occurrence: US)
  Receive Date: 20210217
  Receipt Date: 20230124
  Transmission Date: 20230417
  Serious: Yes (Other)
  Sender: FDA-Public Use
  Company Number: US-PFIZER INC-2021142632

PATIENT
  Age: 70 Year
  Sex: Male
  Weight: 80.29 kg

DRUGS (1)
  1. VYNDAMAX [Suspect]
     Active Substance: TAFAMIDIS
     Indication: Amyloidosis
     Dosage: 61 MG, 1X/DAY (SWALLOW IT)
     Dates: start: 2019

REACTIONS (18)
  - Cardiac failure acute [Unknown]
  - Left ventricular failure [Unknown]
  - Pulmonary arterial hypertension [Unknown]
  - Atrial fibrillation [Unknown]
  - Syncope [Unknown]
  - Cardiac amyloidosis [Unknown]
  - Cardiac failure congestive [Unknown]
  - Pulmonary hypertension [Unknown]
  - Diastolic dysfunction [Unknown]
  - Ejection fraction decreased [Unknown]
  - Chronic left ventricular failure [Unknown]
  - Ventricular extrasystoles [Unknown]
  - Atrial flutter [Unknown]
  - Dyspnoea [Unknown]
  - Lymphadenopathy mediastinal [Unknown]
  - Essential hypertension [Unknown]
  - Presyncope [Unknown]
  - Off label use [Unknown]

NARRATIVE: CASE EVENT DATE: 20190101
